FAERS Safety Report 7406415-1 (Version None)
Quarter: 2011Q2

REPORT INFORMATION
  Report Type: 
  Country: None (occurrence: None)
  Receive Date: 20110411
  Receipt Date: 20110330
  Transmission Date: 20111010
  Serious: Yes (Other)
  Sender: FDA-Public Use
  Company Number: PHHY2011US27593

PATIENT

DRUGS (2)
  1. FOCALIN XR [Suspect]
     Dosage: 30 MG, QD
  2. FOCALIN [Suspect]
     Dosage: 15 MG, QD

REACTIONS (1)
  - CONVULSION [None]
